FAERS Safety Report 9360196 (Version 4)
Quarter: 2013Q4

REPORT INFORMATION
  Report Type: Report from Study
  Country: ES (occurrence: ES)
  Receive Date: 20130621
  Receipt Date: 20131216
  Transmission Date: 20140711
  Serious: Yes (Hospitalization, Other)
  Sender: FDA-Public Use
  Company Number: ES-BIOGENIDEC-2013BI052608

PATIENT
  Age: 46 Year
  Sex: Female
  Weight: 70 kg

DRUGS (4)
  1. TYSABRI [Suspect]
     Indication: MULTIPLE SCLEROSIS
     Route: 042
     Dates: start: 20080207, end: 20100817
  2. AMOXICILINE [Concomitant]
     Indication: INFECTION
     Dates: start: 20130404, end: 20130411
  3. TEGRETOL [Concomitant]
  4. LIORESAL [Concomitant]

REACTIONS (1)
  - Endometrial adenocarcinoma [Not Recovered/Not Resolved]
